FAERS Safety Report 20696569 (Version 2)
Quarter: 2022Q3

REPORT INFORMATION
  Report Type: Report from Study
  Country: US (occurrence: US)
  Receive Date: 20220411
  Receipt Date: 20220922
  Transmission Date: 20221027
  Serious: No
  Sender: FDA-Public Use
  Company Number: US-DSJP-DSU-2022-112456

PATIENT
  Age: 43 Year
  Sex: Female
  Weight: 73.9 kg

DRUGS (3)
  1. ENHERTU [Suspect]
     Active Substance: FAM-TRASTUZUMAB DERUXTECAN-NXKI
     Indication: Breast cancer
     Dosage: 413.1 MG, ONCE EVERY 3 WK
     Route: 042
     Dates: start: 20211020
  2. ENHERTU [Suspect]
     Active Substance: FAM-TRASTUZUMAB DERUXTECAN-NXKI
     Dosage: 396 MG, ONCE EVERY 3 WK
     Route: 042
     Dates: start: 20220307, end: 2022
  3. ENHERTU [Suspect]
     Active Substance: FAM-TRASTUZUMAB DERUXTECAN-NXKI
     Dosage: 396 MG, ONCE EVERY 3 WK
     Route: 042
     Dates: start: 20220406

REACTIONS (2)
  - Therapy change [Unknown]
  - Therapy cessation [Unknown]

NARRATIVE: CASE EVENT DATE: 20220307
